FAERS Safety Report 7756728 (Version 3)
Quarter: 2013Q3

REPORT INFORMATION
  Report Type: Spontaneous
  Country: US (occurrence: US)
  Receive Date: 20110112
  Receipt Date: 20130917
  Transmission Date: 20140515
  Serious: Yes (Hospitalization)
  Sender: FDA-Public Use
  Company Number: US-B.I. PHARMACEUTICALS,INC./RIDGEFIELD-2011-BP-00329BP

PATIENT
  Age: 86 Year
  Sex: Female

DRUGS (6)
  1. PRADAXA [Suspect]
     Indication: ATRIAL FIBRILLATION
     Dosage: 300 MG
     Route: 048
     Dates: start: 20101201
  2. SIMVASTATIN [Concomitant]
  3. TRIAMTERENE [Concomitant]
  4. DILTIAZEM [Concomitant]
  5. LEVOTHYROXINE [Concomitant]
  6. VITAMIN D [Concomitant]

REACTIONS (5)
  - Upper gastrointestinal haemorrhage [Unknown]
  - Abdominal pain upper [Recovered/Resolved]
  - Breast pain [Recovered/Resolved]
  - Vomiting [Recovered/Resolved]
  - Pain [Recovered/Resolved]
